FAERS Safety Report 7989319-5 (Version None)
Quarter: 2011Q4

REPORT INFORMATION
  Report Type: 
  Country: None (occurrence: None)
  Receive Date: 20111219
  Receipt Date: 20111206
  Transmission Date: 20120403
  Serious: Yes (Other)
  Sender: FDA-Public Use
  Company Number: FR-JNJFOC-20111207160

PATIENT

DRUGS (47)
  1. RITUXIMAB [Suspect]
     Route: 065
  2. RITUXIMAB [Suspect]
     Route: 065
  3. FILGRASTIM [Suspect]
     Indication: DIFFUSE LARGE B-CELL LYMPHOMA
     Route: 058
  4. METHOTREXATE [Suspect]
     Route: 037
  5. ETOPOSIDE [Suspect]
     Route: 065
  6. CYTARABINE [Suspect]
     Route: 058
  7. BLEOMYCIN SULFATE [Suspect]
     Indication: DIFFUSE LARGE B-CELL LYMPHOMA
     Route: 065
  8. BLEOMYCIN SULFATE [Suspect]
     Route: 065
  9. PREDNISONE [Suspect]
     Route: 065
  10. BLEOMYCIN SULFATE [Suspect]
     Route: 065
  11. PREDNISONE [Suspect]
     Route: 065
  12. METHOTREXATE [Suspect]
     Indication: DIFFUSE LARGE B-CELL LYMPHOMA
     Route: 042
  13. ETOPOSIDE [Suspect]
     Route: 065
  14. IFOSFAMIDE [Suspect]
     Route: 065
  15. RITUXIMAB [Suspect]
     Route: 065
  16. CYCLOPHOSPHAMIDE [Suspect]
     Route: 065
  17. CYCLOPHOSPHAMIDE [Suspect]
     Route: 065
  18. PREDNISONE [Suspect]
     Route: 065
  19. METHOTREXATE [Suspect]
     Indication: PROPHYLAXIS
     Route: 037
  20. METHOTREXATE [Suspect]
     Route: 042
  21. ETOPOSIDE [Suspect]
     Indication: DIFFUSE LARGE B-CELL LYMPHOMA
     Route: 065
  22. DOXORUBICIN HCL [Suspect]
     Route: 042
  23. RITUXIMAB [Suspect]
     Indication: DIFFUSE LARGE B-CELL LYMPHOMA
     Route: 065
  24. RITUXIMAB [Suspect]
     Route: 065
  25. RITUXIMAB [Suspect]
     Route: 065
  26. RITUXIMAB [Suspect]
     Route: 065
  27. CYCLOPHOSPHAMIDE [Suspect]
     Indication: DIFFUSE LARGE B-CELL LYMPHOMA
     Route: 065
  28. CYCLOPHOSPHAMIDE [Suspect]
     Route: 065
  29. LEUCOVORIN CALCIUM [Suspect]
     Indication: DIFFUSE LARGE B-CELL LYMPHOMA
     Route: 065
  30. IFOSFAMIDE [Suspect]
     Indication: DIFFUSE LARGE B-CELL LYMPHOMA
     Route: 065
  31. CYTARABINE [Suspect]
     Indication: DIFFUSE LARGE B-CELL LYMPHOMA
     Route: 058
  32. DOXORUBICIN HCL [Suspect]
     Indication: DIFFUSE LARGE B-CELL LYMPHOMA
     Route: 042
  33. DOXORUBICIN HCL [Suspect]
     Route: 042
  34. ELDISINE [Suspect]
     Indication: DIFFUSE LARGE B-CELL LYMPHOMA
     Route: 065
  35. ELDISINE [Suspect]
     Route: 065
  36. PREDNISONE [Suspect]
     Indication: DIFFUSE LARGE B-CELL LYMPHOMA
     Route: 065
  37. METHOTREXATE [Suspect]
     Route: 037
  38. ETOPOSIDE [Suspect]
     Route: 065
  39. IFOSFAMIDE [Suspect]
     Route: 065
  40. BLEOMYCIN SULFATE [Suspect]
     Route: 065
  41. DOXORUBICIN HCL [Suspect]
     Route: 042
  42. RITUXIMAB [Suspect]
     Route: 065
  43. ELDISINE [Suspect]
     Route: 065
  44. ELDISINE [Suspect]
     Route: 065
  45. PREDNISONE [Suspect]
     Route: 065
  46. METHOTREXATE [Suspect]
     Route: 037
  47. IFOSFAMIDE [Suspect]
     Route: 065

REACTIONS (1)
  - LUNG NEOPLASM MALIGNANT [None]
